FAERS Safety Report 4319747-0 (Version None)
Quarter: 2004Q1

REPORT INFORMATION
  Report Type: 
  Country: None (occurrence: None)
  Receive Date: 20040319
  Receipt Date: 20040315
  Transmission Date: 20041129
  Serious: Yes (Other)
  Sender: FDA-Public Use
  Company Number: CA-GLAXOSMITHKLINE-A0502949A

PATIENT
  Age: 49 Year
  Sex: Male

DRUGS (3)
  1. ZYBAN [Suspect]
     Dosage: 150MG SEE DOSAGE TEXT
     Route: 048
     Dates: start: 20040101
  2. ALCOHOL [Suspect]
     Dosage: 8Z SEE DOSAGE TEXT
     Route: 048
     Dates: start: 20040306
  3. ANTIHYPERTENSIVES [Concomitant]

REACTIONS (4)
  - CORNEAL BLEB [None]
  - DRUG INTERACTION [None]
  - EYE PAIN [None]
  - KERATOCONJUNCTIVITIS SICCA [None]
